FAERS Safety Report 5761871-X (Version None)
Quarter: 2008Q2

REPORT INFORMATION
  Report Type: 
  Country: None (occurrence: None)
  Receive Date: 20080606
  Receipt Date: 20080527
  Transmission Date: 20081010
  Serious: Yes (Other)
  Sender: FDA-Public Use
  Company Number: FR-PFIZER INC-2008045859

PATIENT
  Age: 52 Year
  Sex: Female

DRUGS (1)
  1. LYRICA [Suspect]
     Indication: NEURALGIA
     Dosage: DAILY DOSE:75MG

REACTIONS (6)
  - DEPRESSED MOOD [None]
  - DRUG INEFFECTIVE [None]
  - EXPRESSIVE LANGUAGE DISORDER [None]
  - PAIN [None]
  - SOMNOLENCE [None]
  - URTICARIA [None]
